FAERS Safety Report 5503541-9 (Version None)
Quarter: 2007Q4

REPORT INFORMATION
  Report Type: 
  Country: None (occurrence: None)
  Receive Date: 20071029
  Receipt Date: 20071018
  Transmission Date: 20080405
  Serious: Yes (Disabling)
  Sender: FDA-Public Use
  Company Number: 2007AL004417

PATIENT
  Age: 73 Year
  Sex: Male

DRUGS (11)
  1. DICLOFENAC SODIUM [Suspect]
     Indication: PAIN
     Dosage: 50 MG; QD; PO
     Route: 048
     Dates: start: 20070207, end: 20070207
  2. OXYCONTIN [Concomitant]
  3. DEXAMETHASONE [Concomitant]
  4. PARACETAMOL [Concomitant]
  5. METOCLOPRAMIDE [Concomitant]
  6. HALOPERIDOL [Concomitant]
  7. BISOPROLOL FUMARATE [Concomitant]
  8. RABEPRAZOLE SODIUM [Concomitant]
  9. SENNA [Concomitant]
  10. DOCUSATE SODIUM [Concomitant]
  11. BUSPIRONE HCL [Concomitant]

REACTIONS (3)
  - EYE SWELLING [None]
  - LACRIMATION INCREASED [None]
  - OCULAR HYPERAEMIA [None]
